FAERS Safety Report 6111168-3 (Version None)
Quarter: 2009Q1

REPORT INFORMATION
  Report Type: 
  Country: None (occurrence: None)
  Receive Date: 20090311
  Receipt Date: 20080829
  Transmission Date: 20090719
  Serious: No
  Sender: FDA-Public Use
  Company Number: US-KINGPHARMUSA00001-K200801026

PATIENT
  Age: 72 Year
  Sex: Male

DRUGS (3)
  1. ALTACE [Suspect]
     Indication: HYPERTENSION
     Dates: start: 20060101
  2. ALTACE [Suspect]
  3. GAVISCON                           /00237601/ [Concomitant]
     Indication: GASTROOESOPHAGEAL REFLUX DISEASE

REACTIONS (2)
  - COUGH [None]
  - GASTROOESOPHAGEAL REFLUX DISEASE [None]
